FAERS Safety Report 7913847-1 (Version None)
Quarter: 2011Q4

REPORT INFORMATION
  Report Type: 
  Country: None (occurrence: None)
  Receive Date: 20111114
  Receipt Date: 20111114
  Transmission Date: 20120403
  Serious: Yes (Other)
  Sender: FDA-Public Use
  Company Number: None

PATIENT
  Sex: Female
  Weight: 121.8 kg

DRUGS (1)
  1. VICTOZA [Suspect]
     Indication: TYPE 2 DIABETES MELLITUS
     Dosage: 1.2 MG DAILY SC INJECTION
     Route: 058
     Dates: start: 20110330, end: 20111030

REACTIONS (2)
  - OEDEMA PERIPHERAL [None]
  - PRURITUS [None]
